FAERS Safety Report 5984741-0 (Version None)
Quarter: 2008Q4

REPORT INFORMATION
  Report Type: 
  Country: None (occurrence: None)
  Receive Date: 20081208
  Receipt Date: 20081205
  Transmission Date: 20090506
  Serious: No
  Sender: FDA-Public Use
  Company Number: US-B.I. PHARMACEUTICALS,INC./RIDGEFIELD-2008-BP-18188BP

PATIENT
  Age: 81 Year
  Sex: Female

DRUGS (3)
  1. SPIRIVA [Suspect]
     Indication: CHRONIC OBSTRUCTIVE PULMONARY DISEASE
     Dosage: 18MCG
     Route: 055
     Dates: start: 20071201
  2. COZAAR [Concomitant]
     Indication: HYPERTENSION
  3. ATENELOL [Concomitant]
     Indication: HYPERTENSION

REACTIONS (3)
  - CONSTIPATION [None]
  - EYE PAIN [None]
  - VISION BLURRED [None]
